FAERS Safety Report 8072939-X (Version None)
Quarter: 2012Q1

REPORT INFORMATION
  Report Type: 
  Country: None (occurrence: None)
  Receive Date: 20120126
  Receipt Date: 20120111
  Transmission Date: 20120608
  Serious: Yes (Death)
  Sender: FDA-Public Use
  Company Number: DE-CELGENEUS-062-50794-12011161

PATIENT
  Age: 75 Year
  Sex: Male
  Weight: 89 kg

DRUGS (9)
  1. BERODUAL [Concomitant]
     Route: 065
  2. BUDESONIDE [Concomitant]
     Route: 065
  3. TORSEMIDE [Concomitant]
     Route: 065
  4. LEVOTHYROXINE SODIUM [Concomitant]
     Route: 065
  5. ACETYLSALICYLIC ACID SRT [Concomitant]
     Route: 065
  6. VIDAZA [Suspect]
     Route: 058
     Dates: start: 20110412, end: 20110903
  7. IRBESARTAN [Concomitant]
     Route: 065
  8. SIMVASTATIN [Concomitant]
     Route: 065
  9. FORMOTEROL FUMARATE [Concomitant]
     Route: 065

REACTIONS (2)
  - ACUTE MYELOID LEUKAEMIA [None]
  - MYELODYSPLASTIC SYNDROME TRANSFORMATION [None]
